FAERS Safety Report 24559699 (Version 1)
Quarter: 2024Q4

REPORT INFORMATION
  Report Type: Spontaneous
  Country: US (occurrence: US)
  Receive Date: 20241029
  Receipt Date: 20241029
  Transmission Date: 20250114
  Serious: No
  Sender: ALMIRALL, LLC
  Company Number: US-ALMIRALL, LLC-2023AQU000074

PATIENT
  Sex: Female
  Weight: 45.805 kg

DRUGS (3)
  1. SEYSARA [Suspect]
     Active Substance: SARECYCLINE HYDROCHLORIDE
     Indication: Acne
     Dosage: 60 MILLIGRAM, QD
     Route: 065
  2. AZELAIC ACID [Concomitant]
     Active Substance: AZELAIC ACID
     Indication: Product used for unknown indication
     Dosage: UNK
  3. WINLEVI [Concomitant]
     Active Substance: CLASCOTERONE
     Indication: Product used for unknown indication
     Dosage: UNK

REACTIONS (1)
  - Therapeutic product effect incomplete [Unknown]
